FAERS Safety Report 7283646-5 (Version None)
Quarter: 2011Q1

REPORT INFORMATION
  Report Type: 
  Country: None (occurrence: None)
  Receive Date: 20110209
  Receipt Date: 20110202
  Transmission Date: 20110831
  Serious: Yes (Life-Threatening, Hospitalization, Other)
  Sender: FDA-Public Use
  Company Number: FR-ELI_LILLY_AND_COMPANY-FR201102000449

PATIENT
  Sex: Female

DRUGS (12)
  1. HEMIGOXINE [Concomitant]
  2. LASIX [Concomitant]
     Dosage: 80 MG, DAILY (1/D)
     Route: 048
  3. COUMADIN [Concomitant]
  4. VITAMIN K TAB [Concomitant]
  5. PREVISCAN [Concomitant]
     Indication: MITRAL VALVE STENOSIS
     Dosage: 0.5 D/F, DAILY (1/D)
     Route: 048
     Dates: end: 20110104
  6. ATARAX [Concomitant]
     Dosage: 0.5 D/F, 3/D
     Route: 048
     Dates: end: 20110104
  7. STAGID [Concomitant]
     Route: 048
     Dates: end: 20110104
  8. BISOPROLOL FUMARATE [Concomitant]
  9. ZYPREXA [Suspect]
     Dosage: 1 D/F, DAILY (1/D)
     Route: 048
     Dates: end: 20110104
  10. STILNOX [Concomitant]
     Dosage: 1 D/F, DAILY (1/D)
     Route: 048
     Dates: end: 20110104
  11. DIFFU K [Concomitant]
     Dosage: 2 D/F, 2/D
     Route: 048
     Dates: end: 20110104
  12. KASKADIL [Concomitant]

REACTIONS (8)
  - BRAIN OEDEMA [None]
  - LOSS OF CONSCIOUSNESS [None]
  - APATHY [None]
  - SUBDURAL HAEMATOMA [None]
  - HYPERTHERMIA [None]
  - INTERNATIONAL NORMALISED RATIO INCREASED [None]
  - CONFUSIONAL STATE [None]
  - PSYCHOMOTOR SKILLS IMPAIRED [None]
